FAERS Safety Report 12098836 (Version 1)
Quarter: 2016Q1

REPORT INFORMATION
  Report Type: Spontaneous
  Country: CA (occurrence: CA)
  Receive Date: 20160222
  Receipt Date: 20160222
  Transmission Date: 20160526
  Serious: Yes (Other)
  Sender: FDA-Public Use
  Company Number: CA-BAYER-2015-004165

PATIENT
  Age: 50 Year
  Sex: Female
  Weight: 52 kg

DRUGS (3)
  1. LEVAQUIN [Suspect]
     Active Substance: LEVOFLOXACIN
     Indication: BRONCHITIS
     Dosage: UNK
     Route: 048
     Dates: start: 20090710, end: 20090724
  2. AVELOX [Suspect]
     Active Substance: MOXIFLOXACIN HYDROCHLORIDE
     Dosage: UNK
     Dates: start: 2007
  3. BENADRYL [Concomitant]
     Active Substance: DIPHENHYDRAMINE HYDROCHLORIDE
     Indication: NASAL CONGESTION

REACTIONS (25)
  - Eye inflammation [Not Recovered/Not Resolved]
  - Vertigo [None]
  - Solar dermatitis [None]
  - Restless legs syndrome [None]
  - Depression [None]
  - Photophobia [Not Recovered/Not Resolved]
  - Muscle spasms [None]
  - Tendon rupture [None]
  - Fibromyalgia [None]
  - Tendon discomfort [None]
  - Helicobacter infection [None]
  - Visual impairment [Not Recovered/Not Resolved]
  - Visual impairment [None]
  - Fatigue [None]
  - Disturbance in attention [None]
  - Arthralgia [None]
  - Sleep disorder [None]
  - Hyperacusis [None]
  - Dyspepsia [None]
  - Hypoaesthesia [None]
  - Gastrooesophageal reflux disease [None]
  - Anxiety [None]
  - Photophobia [None]
  - Perfume sensitivity [None]
  - Gallbladder disorder [None]

NARRATIVE: CASE EVENT DATE: 2007
